FAERS Safety Report 7921758-0 (Version None)
Quarter: 2011Q4

REPORT INFORMATION
  Report Type: 
  Country: None (occurrence: None)
  Receive Date: 20111117
  Receipt Date: 20110929
  Transmission Date: 20120403
  Serious: Yes (Life-Threatening, Hospitalization)
  Sender: FDA-Public Use
  Company Number: JP-GLAXOSMITHKLINE-B0752058A

PATIENT
  Sex: Female

DRUGS (3)
  1. LITHIUM CARBONATE [Concomitant]
     Indication: BIPOLAR DISORDER
     Dosage: 800MG PER DAY
     Route: 048
     Dates: start: 20110826, end: 20110926
  2. LAMICTAL [Suspect]
     Indication: BIPOLAR DISORDER
     Dosage: 25MG PER DAY
     Route: 048
     Dates: start: 20110916, end: 20110926
  3. ZYPREXA [Concomitant]
     Indication: BIPOLAR DISORDER
     Dosage: 2.5MG PER DAY
     Route: 048
     Dates: start: 20110726, end: 20110926

REACTIONS (13)
  - BLOOD IMMUNOGLOBULIN E INCREASED [None]
  - ALANINE AMINOTRANSFERASE INCREASED [None]
  - DRUG ERUPTION [None]
  - FIBRIN D DIMER INCREASED [None]
  - BLOOD LACTATE DEHYDROGENASE INCREASED [None]
  - ASPARTATE AMINOTRANSFERASE INCREASED [None]
  - BLOOD ALBUMIN DECREASED [None]
  - GAMMA-GLUTAMYLTRANSFERASE INCREASED [None]
  - PYREXIA [None]
  - LIVER DISORDER [None]
  - WHITE BLOOD CELL COUNT ABNORMAL [None]
  - BLOOD ALKALINE PHOSPHATASE INCREASED [None]
  - PROTHROMBIN TIME PROLONGED [None]
